FAERS Safety Report 7065644 (Version 2)
Quarter: 2019Q4

REPORT INFORMATION
  Report Type: Spontaneous
  Country: GB (occurrence: GB)
  Receive Date: 20090728
  Receipt Date: 20191219
  Transmission Date: 20200122
  Serious: Yes (Hospitalization, Other)
  Sender: FDA-Public Use
  Company Number: GB-MYLANLABS-2009S1012580

PATIENT
  Sex: Male

DRUGS (7)
  1. CLOZARIL [Interacting]
     Active Substance: CLOZAPINE
     Indication: SCHIZOPHRENIA
     Dosage: 25 MG,BID
     Route: 048
     Dates: start: 20090309
  2. FYBOGEL [Concomitant]
     Active Substance: PLANTAGO OVATA SEED
     Indication: PRODUCT USED FOR UNKNOWN INDICATION
     Dosage: UNK
  3. MOVICOL [Concomitant]
     Active Substance: POLYETHYLENE GLYCOL 3350\POTASSIUM CHLORIDE\SODIUM BICARBONATE\SODIUM CHLORIDE
     Indication: PRODUCT USED FOR UNKNOWN INDICATION
     Dosage: UNK
  4. FLUVOXAMINE [Suspect]
     Active Substance: FLUVOXAMINE
     Indication: OBSESSIVE-COMPULSIVE DISORDER
     Dosage: UNK
     Route: 048
     Dates: start: 200811, end: 200902
  5. VALPROATE SODIUM. [Interacting]
     Active Substance: VALPROATE SODIUM
     Indication: PRODUCT USED FOR UNKNOWN INDICATION
     Dosage: UNK
  6. OMEPRAZOLE. [Concomitant]
     Active Substance: OMEPRAZOLE
     Indication: PRODUCT USED FOR UNKNOWN INDICATION
     Dosage: UNK
     Route: 048
  7. CLOZARIL [Interacting]
     Active Substance: CLOZAPINE
     Dosage: UNK
     Dates: start: 20060810, end: 20090206

REACTIONS (10)
  - Renal impairment [Recovered/Resolved]
  - Dizziness [Recovered/Resolved]
  - Psychotic disorder [Unknown]
  - Blood sodium increased [Recovered/Resolved]
  - Haemorrhoids [Unknown]
  - Somnolence [Unknown]
  - Drug interaction [Unknown]
  - Antipsychotic drug level increased [Recovered/Resolved]
  - Treatment noncompliance [Unknown]
  - Heart rate decreased [Unknown]
